FAERS Safety Report 19425829 (Version 1)
Quarter: 2021Q2

REPORT INFORMATION
  Report Type: Other
  Country: AU (occurrence: AU)
  Receive Date: 20210617
  Receipt Date: 20210617
  Transmission Date: 20210717
  Serious: Yes (Hospitalization)
  Sender: FDA-Public Use
  Company Number: AU-ROCHE-2850207

PATIENT
  Age: 66 Year
  Sex: Female

DRUGS (5)
  1. PRASUGREL. [Concomitant]
     Active Substance: PRASUGREL
     Indication: PRODUCT USED FOR UNKNOWN INDICATION
  2. ATROPINE. [Concomitant]
     Active Substance: ATROPINE
     Indication: PRODUCT USED FOR UNKNOWN INDICATION
  3. ACTILYSE [Suspect]
     Active Substance: ALTEPLASE
     Indication: CORONARY ARTERY THROMBOSIS
     Dosage: 10MG ALTEPLASE WAS SUBSEQUENTLY DELIVERED OVER FIVE MINUTES TO THE MID?RCA VIA A FINECROSS?MICROCATH
     Route: 022
  4. ADRENALINE [Concomitant]
     Active Substance: EPINEPHRINE
     Indication: PRODUCT USED FOR UNKNOWN INDICATION
  5. ASPIRIN [ACETYLSALICYLIC ACID] [Concomitant]
     Active Substance: ASPIRIN
     Indication: PRODUCT USED FOR UNKNOWN INDICATION

REACTIONS (5)
  - Left ventricular dysfunction [Unknown]
  - Electrocardiogram ST segment elevation [Unknown]
  - Ventricular hypokinesia [Unknown]
  - Tricuspid valve incompetence [Unknown]
  - Mitral valve incompetence [Unknown]
